FAERS Safety Report 5808395-9 (Version None)
Quarter: 2008Q3

REPORT INFORMATION
  Report Type: 
  Country: None (occurrence: None)
  Receive Date: 20080714
  Receipt Date: 20080703
  Transmission Date: 20090109
  Serious: Yes (Other)
  Sender: FDA-Public Use
  Company Number: PHBS2007CH16122

PATIENT
  Age: 25 Year
  Sex: Male

DRUGS (8)
  1. LEPONEX [Suspect]
     Indication: TRANSIENT PSYCHOSIS
     Dosage: 300MG/D
     Route: 065
     Dates: start: 20040101
  2. LEPONEX [Suspect]
     Dosage: 250 MG/D
  3. ABILIFY [Concomitant]
     Indication: PSYCHOTIC DISORDER
     Dosage: 5MG/D
     Route: 065
  4. ABILIFY [Concomitant]
     Dosage: 10 MG/D
  5. LAMICTAL [Concomitant]
     Dosage: 50MG/D
     Route: 065
  6. PROMAZINE HYDROCHLORIDE [Concomitant]
  7. METOPROLOL [Concomitant]
  8. AMISULPRIDE [Concomitant]

REACTIONS (4)
  - BUNDLE BRANCH BLOCK RIGHT [None]
  - ELECTROCARDIOGRAM QT PROLONGED [None]
  - LONG QT SYNDROME [None]
  - SINUS TACHYCARDIA [None]
